FAERS Safety Report 22393791 (Version 1)
Quarter: 2023Q2

REPORT INFORMATION
  Report Type: Spontaneous
  Country: US (occurrence: None)
  Receive Date: 20230531
  Receipt Date: 20230531
  Transmission Date: 20230721
  Serious: Yes (Hospitalization, Other)
  Sender: FDA-Public Use
  Company Number: None

PATIENT
  Age: 24 Year
  Sex: Male
  Weight: 71.55 kg

DRUGS (8)
  1. RINVOQ [Suspect]
     Active Substance: UPADACITINIB
     Indication: Colitis ulcerative
     Route: 048
     Dates: start: 20230417, end: 20230430
  2. Insulin Pump/Humalog [Concomitant]
  3. PREDNISONE [Concomitant]
     Active Substance: PREDNISONE
  4. LEXAPRO [Concomitant]
     Active Substance: ESCITALOPRAM OXALATE
  5. LOVENOX [Concomitant]
     Active Substance: ENOXAPARIN SODIUM
  6. TYLENOL [Concomitant]
     Active Substance: ACETAMINOPHEN
  7. VITAMIN D [Concomitant]
     Active Substance: VITAMIN D NOS
  8. VITAMINS [Concomitant]
     Active Substance: VITAMINS

REACTIONS (8)
  - Haematochezia [None]
  - Frequent bowel movements [None]
  - Arthralgia [None]
  - Nausea [None]
  - Vomiting [None]
  - Dehydration [None]
  - Colostomy [None]
  - Colitis ulcerative [None]

NARRATIVE: CASE EVENT DATE: 20230517
